FAERS Safety Report 5678829-1 (Version None)
Quarter: 2008Q1

REPORT INFORMATION
  Report Type: 
  Country: None (occurrence: None)
  Receive Date: 20080321
  Receipt Date: 20080313
  Transmission Date: 20080703
  Serious: Yes (Other)
  Sender: FDA-Public Use
  Company Number: 025230

PATIENT
  Age: 84 Year
  Sex: Male

DRUGS (3)
  1. KETOCONAZOLE [Suspect]
     Indication: PROSTATE CANCER
     Dosage: 400 MG, TID, ORAL
     Route: 048
  2. LOVASTATIN [Suspect]
     Indication: HYPERCHOLESTEROLAEMIA
     Dosage: SEVERAL YEARS
  3. HYDROCORTISONE [Concomitant]

REACTIONS (9)
  - DRUG INEFFECTIVE [None]
  - DRUG INTERACTION [None]
  - DRUG LEVEL INCREASED [None]
  - HEPATIC STEATOSIS [None]
  - HEPATITIS [None]
  - METASTASES TO BONE [None]
  - PROSTATE CANCER [None]
  - PROSTATIC SPECIFIC ANTIGEN INCREASED [None]
  - RHABDOMYOLYSIS [None]
